FAERS Safety Report 5667362-9 (Version None)
Quarter: 2008Q1

REPORT INFORMATION
  Report Type: 
  Country: None (occurrence: None)
  Receive Date: 20080315
  Receipt Date: 20080121
  Transmission Date: 20080703
  Serious: No
  Sender: FDA-Public Use
  Company Number: US-ABBOTT-08P-163-0434549-00

PATIENT
  Sex: Male
  Weight: 106.24 kg

DRUGS (2)
  1. HUMIRA [Suspect]
     Indication: CROHN'S DISEASE
     Route: 058
     Dates: start: 20080115, end: 20080115
  2. HUMIRA [Suspect]

REACTIONS (3)
  - EYE PAIN [None]
  - VISUAL DISTURBANCE [None]
  - VITREOUS FLOATERS [None]
